FAERS Safety Report 11830863 (Version 1)
Quarter: 2015Q4

REPORT INFORMATION
  Report Type: Spontaneous
  Country: GB (occurrence: GB)
  Receive Date: 20151214
  Receipt Date: 20151214
  Transmission Date: 20160305
  Serious: Yes (Life-Threatening)
  Sender: FDA-Public Use
  Company Number: GB-ACCORD-036080

PATIENT
  Age: 71 Year
  Sex: Female
  Weight: 90 kg

DRUGS (19)
  1. RAMIPRIL. [Suspect]
     Active Substance: RAMIPRIL
     Indication: HYPERTENSION
     Route: 048
  2. ADIZEM-XL [Concomitant]
     Active Substance: DILTIAZEM HYDROCHLORIDE
  3. BUMETANIDE. [Concomitant]
     Active Substance: BUMETANIDE
  4. METFORMIN [Concomitant]
     Active Substance: METFORMIN HYDROCHLORIDE
  5. PARACETAMOL [Concomitant]
     Active Substance: ACETAMINOPHEN
  6. SYMBICORT [Concomitant]
     Active Substance: BUDESONIDE\FORMOTEROL FUMARATE DIHYDRATE
  7. FULTIUM-D3 [Concomitant]
  8. WARFARIN [Concomitant]
     Active Substance: WARFARIN
  9. ATORVASTATIN [Concomitant]
     Active Substance: ATORVASTATIN
  10. GTN [Concomitant]
     Active Substance: NITROGLYCERIN
  11. NICORANDIL [Concomitant]
     Active Substance: NICORANDIL
  12. TIOTROPIUM/TIOTROPIUM BROMIDE [Concomitant]
  13. CARBOCISTEINE/CARBOCISTEINE LYSINE/CARBOCISTEINE SODIUM [Concomitant]
  14. IBUPROFEN. [Suspect]
     Active Substance: IBUPROFEN
     Indication: ANALGESIC THERAPY
     Dosage: TOOK TWICE (ONE WAS TAKEN THE NIGHT BEFORE THE INCIDENT AND ONE THE MORNING)
     Route: 048
     Dates: start: 20151116, end: 20151118
  15. DIGOXIN. [Concomitant]
     Active Substance: DIGOXIN
  16. DIHYDROCODEINE [Concomitant]
     Active Substance: DIHYDROCODEINE
  17. OMEPRAZOLE. [Concomitant]
     Active Substance: OMEPRAZOLE
  18. SALBUTAMOL [Concomitant]
     Active Substance: ALBUTEROL
  19. COCODAMOL [Concomitant]
     Active Substance: ACETAMINOPHEN\CODEINE PHOSPHATE

REACTIONS (1)
  - Anaphylactic reaction [Recovered/Resolved]

NARRATIVE: CASE EVENT DATE: 20151117
